FAERS Safety Report 4620996-2 (Version None)
Quarter: 2005Q2

REPORT INFORMATION
  Report Type: 
  Country: None (occurrence: None)
  Receive Date: 20050317
  Receipt Date: 20041118
  Transmission Date: 20051028
  Serious: Yes (Other)
  Sender: FDA-Public Use
  Company Number: 2004107642

PATIENT

DRUGS (1)
  1. VFEND [Suspect]
     Indication: ILL-DEFINED DISORDER

REACTIONS (1)
  - BLOOD PRESSURE INCREASED [None]
